FAERS Safety Report 8091088-8 (Version None)
Quarter: 2012Q1

REPORT INFORMATION
  Report Type: 
  Country: None (occurrence: None)
  Receive Date: 20120129
  Receipt Date: 20111019
  Transmission Date: 20120608
  Serious: No
  Sender: FDA-Public Use
  Company Number: US-ABBOTT-11P-163-0867081-00

PATIENT
  Sex: Male

DRUGS (2)
  1. HUMIRA [Suspect]
     Indication: RHEUMATOID ARTHRITIS
     Route: 058
     Dates: start: 20080331, end: 20111019
  2. BLOOD THINNER [Concomitant]
     Indication: ANTICOAGULANT THERAPY

REACTIONS (3)
  - PARAESTHESIA [None]
  - PAIN [None]
  - INCREASED TENDENCY TO BRUISE [None]
